FAERS Safety Report 10261241 (Version 1)
Quarter: 2014Q2

REPORT INFORMATION
  Report Type: Spontaneous
  Country: US (occurrence: None)
  Receive Date: 20140623
  Receipt Date: 20140623
  Transmission Date: 20141212
  Serious: Yes (Other)
  Sender: FDA-Public Use
  Company Number: 2014P1004728

PATIENT
  Age: 19 Year
  Sex: Female

DRUGS (2)
  1. MYORISAN [Suspect]
     Indication: ACNE CYSTIC
     Dosage: 1X/DAY
     Dates: start: 20140101, end: 20140514
  2. SPRINTEC [Concomitant]

REACTIONS (3)
  - Rectal haemorrhage [None]
  - Dry skin [None]
  - Xerosis [None]
